FAERS Safety Report 13332293 (Version 1)
Quarter: 2017Q1

REPORT INFORMATION
  Report Type: Spontaneous
  Country: US (occurrence: US)
  Receive Date: 20170314
  Receipt Date: 20170314
  Transmission Date: 20170428
  Serious: No
  Sender: FDA-Public Use
  Company Number: None

PATIENT

DRUGS (1)
  1. BUPROPION 150XL [Suspect]
     Active Substance: BUPROPION
     Indication: DEPRESSION
     Dosage: ?          QUANTITY:1 TABLET(S);?
     Route: 048
     Dates: start: 20170126, end: 20170310

REACTIONS (4)
  - Manufacturing issue [None]
  - Incorrect product storage [None]
  - Product formulation issue [None]
  - Product substitution issue [None]

NARRATIVE: CASE EVENT DATE: 20170215
